FAERS Safety Report 8680537 (Version 2)
Quarter: 2012Q4

REPORT INFORMATION
  Report Type: Report from Study
  Country: DE (occurrence: DE)
  Receive Date: 20120724
  Receipt Date: 20120926
  Transmission Date: 20130627
  Serious: Yes (Death, Hospitalization)
  Sender: FDA-Public Use
  Company Number: DE-ROCHE-1091168

PATIENT
  Sex: Female
  Weight: 67 kg

DRUGS (5)
  1. AVASTIN [Suspect]
     Indication: BREAST CANCER METASTATIC
     Route: 042
  2. XELODA [Suspect]
     Indication: BREAST CANCER METASTATIC
     Route: 048
     Dates: end: 20120709
  3. PANTOPRAZOL [Concomitant]
     Indication: PROPHYLAXIS AGAINST GASTROINTESTINAL ULCER
     Route: 048
  4. OXYGESIC [Concomitant]
     Indication: BONE PAIN
     Route: 048
  5. VOLTAREN RESINAT [Concomitant]
     Indication: BONE PAIN
     Route: 048

REACTIONS (4)
  - Malignant neoplasm progression [Fatal]
  - Hypotension [Not Recovered/Not Resolved]
  - Dehydration [Not Recovered/Not Resolved]
  - Hypothyroidism [Not Recovered/Not Resolved]
